FAERS Safety Report 5748597-3 (Version None)
Quarter: 2008Q2

REPORT INFORMATION
  Report Type: 
  Country: None (occurrence: None)
  Receive Date: 20080523
  Receipt Date: 20080515
  Transmission Date: 20081010
  Serious: Yes (Other)
  Sender: FDA-Public Use
  Company Number: AU-PFIZER INC-2008042741

PATIENT
  Age: 50 Year
  Sex: Female

DRUGS (7)
  1. CHANTIX [Suspect]
     Indication: SMOKING CESSATION THERAPY
  2. SEROQUEL [Concomitant]
     Indication: DEPRESSION
  3. SEROQUEL [Concomitant]
     Indication: ANXIETY
  4. XANAX [Concomitant]
     Indication: DEPRESSION
  5. XANAX [Concomitant]
     Indication: ANXIETY
  6. MOCLOBEMIDE [Concomitant]
     Indication: DEPRESSION
  7. MOCLOBEMIDE [Concomitant]
     Indication: ANXIETY

REACTIONS (3)
  - AMNESIA [None]
  - COORDINATION ABNORMAL [None]
  - HYPOAESTHESIA [None]
